FAERS Safety Report 7549367-6 (Version None)
Quarter: 2011Q2

REPORT INFORMATION
  Report Type: 
  Country: None (occurrence: None)
  Receive Date: 20110615
  Receipt Date: 20030527
  Transmission Date: 20111010
  Serious: Yes (Other)
  Sender: FDA-Public Use
  Company Number: PHBS2002JP14347

PATIENT
  Sex: Female
  Weight: 59.6 kg

DRUGS (7)
  1. LOCHOLEST [Suspect]
     Indication: HYPERCHOLESTEROLAEMIA
     Dosage: 20 MG/DAY
     Route: 048
     Dates: start: 20000527, end: 20021022
  2. TICLOPIDINE HCL [Suspect]
     Indication: CEREBRAL INFARCTION
     Dosage: 100MG/DAY
     Dates: start: 20000415, end: 20021022
  3. SEDIEL [Concomitant]
     Dates: start: 20000108
  4. GLUCOBAY [Concomitant]
     Dates: start: 19970705, end: 20021022
  5. SERMION [Concomitant]
     Dates: start: 20000415, end: 20021022
  6. METHYCOBAL [Concomitant]
     Dates: start: 20010101, end: 20021022
  7. FELODIPINE [Suspect]
     Indication: HYPERTENSION
     Dosage: 10 MG/DAY
     Dates: start: 19990812, end: 20021022

REACTIONS (3)
  - ANAEMIA MACROCYTIC [None]
  - PALPITATIONS [None]
  - MYELODYSPLASTIC SYNDROME [None]
